FAERS Safety Report 15253793 (Version 2)
Quarter: 2019Q2

REPORT INFORMATION
  Report Type: Spontaneous
  Country: US (occurrence: US)
  Receive Date: 20180808
  Receipt Date: 20190405
  Transmission Date: 20190711
  Serious: Yes (Life-Threatening, Hospitalization)
  Sender: FDA-Public Use
  Company Number: US-SUN PHARMACEUTICAL INDUSTRIES LTD-2018US-180777

PATIENT
  Age: 33 Year
  Sex: Male

DRUGS (2)
  1. HEROIN [Suspect]
     Active Substance: DIAMORPHINE
     Indication: PRODUCT USED FOR UNKNOWN INDICATION
     Dosage: UNK
     Route: 065
  2. GABAPENTIN. [Suspect]
     Active Substance: GABAPENTIN
     Indication: PRODUCT USED FOR UNKNOWN INDICATION
     Dosage: 7 TABLETS OF GABAPENTIN
     Route: 065

REACTIONS (6)
  - Somnolence [Not Recovered/Not Resolved]
  - Depressed level of consciousness [Unknown]
  - Bradypnoea [Recovered/Resolved]
  - Pulmonary oedema [Unknown]
  - Drug abuse [Unknown]
  - Hypoxia [Recovered/Resolved]
